FAERS Safety Report 15270627 (Version 1)
Quarter: 2018Q3

REPORT INFORMATION
  Report Type: Spontaneous
  Country: US (occurrence: US)
  Receive Date: 20180726
  Receipt Date: 20180726
  Transmission Date: 20181010
  Serious: No
  Sender: FDA-Public Use
  Company Number: None

PATIENT
  Sex: Female

DRUGS (1)
  1. COPAXONE [Suspect]
     Active Substance: GLATIRAMER ACETATE
     Indication: MULTIPLE SCLEROSIS
     Route: 058
     Dates: start: 20160209, end: 20180515

REACTIONS (5)
  - Injection site pain [None]
  - Injection site urticaria [None]
  - Injection site inflammation [None]
  - Injection site erythema [None]
  - Injection site swelling [None]
